FAERS Safety Report 6605015-0 (Version None)
Quarter: 2010Q1

REPORT INFORMATION
  Report Type: 
  Country: None (occurrence: None)
  Receive Date: 20100218
  Receipt Date: 20100208
  Transmission Date: 20100710
  Serious: Yes (Other)
  Sender: FDA-Public Use
  Company Number: 494355

PATIENT
  Age: 47 Year
  Sex: Male

DRUGS (4)
  1. VINORELBINE TARTRATE [Suspect]
     Indication: HODGKIN'S DISEASE
     Dates: start: 20090101, end: 20090301
  2. GEMCITABINE HCL [Suspect]
     Indication: HODGKIN'S DISEASE
     Dates: start: 20090101, end: 20090301
  3. IFOSFAMIDE [Suspect]
     Indication: HODGKIN'S DISEASE
     Dates: start: 20090101, end: 20090301
  4. PREDNISONE [Suspect]
     Indication: HODGKIN'S DISEASE
     Dates: start: 20090101, end: 20090301

REACTIONS (10)
  - ANAEMIA [None]
  - CONDITION AGGRAVATED [None]
  - DERMATITIS BULLOUS [None]
  - FEBRILE NEUTROPENIA [None]
  - HAEMATOTOXICITY [None]
  - HODGKIN'S DISEASE NODULAR SCLEROSIS STAGE III [None]
  - ICHTHYOSIS [None]
  - SEPSIS [None]
  - THROMBOCYTOPENIA [None]
  - TOXIC SKIN ERUPTION [None]
